FAERS Safety Report 11694523 (Version 1)
Quarter: 2015Q4

REPORT INFORMATION
  Report Type: Spontaneous
  Country: JP (occurrence: JP)
  Receive Date: 20151103
  Receipt Date: 20151103
  Transmission Date: 20160304
  Serious: Yes (Other)
  Sender: FDA-Public Use
  Company Number: JP-PFIZER INC-2015366419

PATIENT
  Age: 23 Year
  Sex: Female

DRUGS (9)
  1. REMERON [Suspect]
     Active Substance: MIRTAZAPINE
     Dosage: 1-MONTH DOSE, SINGLE
     Route: 048
  2. EVE /00109201/ [Suspect]
     Active Substance: IBUPROFEN
     Dosage: 1 BOX, SINGLE
     Route: 048
  3. STOMACHIC /02755901/ [Suspect]
     Active Substance: CALCIUM CARBONATE\SODIUM BICARBONATE
     Dosage: 1 BOX, SINGLE
  4. JZOLOFT [Suspect]
     Active Substance: SERTRALINE HYDROCHLORIDE
     Dosage: 1-MONTH DOSE, SINGLE
     Route: 048
  5. REMERON [Suspect]
     Active Substance: MIRTAZAPINE
     Dosage: 15 MG, 1X/DAY, BEFORE BED TIME
     Route: 048
  6. BUFFERIN /00009201/ [Suspect]
     Active Substance: ASPIRIN\DIHYDROXYALUMINUM AMINOACETATE ANHYDROUS\MAGNESIUM CARBONATE
     Dosage: 1 BOX, SINGLE
     Route: 048
  7. JZOLOFT [Suspect]
     Active Substance: SERTRALINE HYDROCHLORIDE
     Dosage: 25 MG, 2X/DAY
     Route: 048
  8. SENIRAN [Suspect]
     Active Substance: BROMAZEPAM
     Dosage: 1-MONTH DOSE, SINGLE
     Route: 048
  9. SENIRAN [Suspect]
     Active Substance: BROMAZEPAM
     Dosage: 2 MG, 2X/DAY
     Route: 048

REACTIONS (4)
  - Intentional overdose [None]
  - Suicide attempt [Unknown]
  - Overdose [Unknown]
  - Somnolence [Unknown]
